FAERS Safety Report 20720054 (Version 4)
Quarter: 2023Q4

REPORT INFORMATION
  Report Type: Spontaneous
  Country: US (occurrence: US)
  Receive Date: 20220418
  Receipt Date: 20231120
  Transmission Date: 20240110
  Serious: Yes (Other)
  Sender: FDA-Public Use
  Company Number: US-PFIZER INC-202200574742

PATIENT
  Age: 86 Year
  Sex: Female

DRUGS (4)
  1. IBRANCE [Suspect]
     Active Substance: PALBOCICLIB
     Indication: Breast cancer female
     Dosage: 125 MG, TAKE ON DAYS 1-21 OF A 28-DAY CYCLE, TAKE WITH OR WITHOUT FOOD
     Route: 048
  2. IBRANCE [Suspect]
     Active Substance: PALBOCICLIB
     Indication: Breast cancer
     Dosage: 100 MG, TAKE ON DAYS 1-21 OF A 28-DAY CYCLE, TAKE WITH OR WITHOUT FOOD
     Route: 048
  3. IBRANCE [Suspect]
     Active Substance: PALBOCICLIB
     Indication: Neutropenia
  4. LETROZOLE [Concomitant]
     Active Substance: LETROZOLE
     Dosage: Q28D

REACTIONS (2)
  - Neutropenia [Unknown]
  - Product prescribing error [Unknown]
